FAERS Safety Report 4889418-0 (Version None)
Quarter: 2006Q1

REPORT INFORMATION
  Report Type: 
  Country: None (occurrence: None)
  Receive Date: 20060120
  Receipt Date: 20060110
  Transmission Date: 20060701
  Serious: Yes (Hospitalization, Other)
  Sender: FDA-Public Use
  Company Number: 2006007101

PATIENT
  Age: 66 Year
  Sex: Male

DRUGS (10)
  1. ZYVOX [Suspect]
     Indication: STAPHYLOCOCCAL INFECTION
     Dosage: (2 IN 1 D), ORAL
     Route: 048
     Dates: start: 20051021, end: 20051123
  2. RIFAMPICIN [Suspect]
     Indication: STAPHYLOCOCCAL INFECTION
     Dates: start: 20051001
  3. BENICAR [Concomitant]
  4. ZYRTEC [Concomitant]
  5. FLONASE [Concomitant]
  6. LANTUS [Concomitant]
  7. INSULIN [Concomitant]
  8. DIFLUCAN [Concomitant]
  9. GLYBURIDE [Concomitant]
  10. METFORMIN HCL [Concomitant]

REACTIONS (2)
  - DRUG INTERACTION [None]
  - STEVENS-JOHNSON SYNDROME [None]
